FAERS Safety Report 21724134 (Version 5)
Quarter: 2023Q2

REPORT INFORMATION
  Report Type: Spontaneous
  Country: CA (occurrence: CA)
  Receive Date: 20221213
  Receipt Date: 20230601
  Transmission Date: 20230722
  Serious: Yes (Other)
  Sender: FDA-Public Use
  Company Number: CA-PFIZER INC-202201307193

PATIENT
  Age: 70 Year
  Sex: Female

DRUGS (1)
  1. CIBINQO [Suspect]
     Active Substance: ABROCITINIB
     Indication: Dermatitis atopic
     Dosage: 100 MG, 1X/DAY
     Route: 048
     Dates: start: 20221027

REACTIONS (7)
  - Psoriasis [Recovering/Resolving]
  - Hepatic cirrhosis [Recovered/Resolved]
  - Fatigue [Unknown]
  - Dizziness [Recovered/Resolved]
  - Insomnia [Unknown]
  - Urinary tract infection [Unknown]
  - Nocturia [Unknown]

NARRATIVE: CASE EVENT DATE: 20220101
